FAERS Safety Report 17253341 (Version 1)
Quarter: 2020Q1

REPORT INFORMATION
  Report Type: Spontaneous
  Country: US (occurrence: US)
  Receive Date: 20200109
  Receipt Date: 20200109
  Transmission Date: 20200409
  Serious: No
  Sender: FDA-Public Use
  Company Number: US-009507513-2001USA001122

PATIENT
  Sex: Female
  Weight: 63 kg

DRUGS (11)
  1. XELJANZ [Suspect]
     Active Substance: TOFACITINIB CITRATE
     Indication: RHEUMATOID ARTHRITIS
     Dosage: 11 MG, 1 IN 1 D
  2. ENBREL [Suspect]
     Active Substance: ETANERCEPT
  3. ORENCIA [Suspect]
     Active Substance: ABATACEPT
  4. ACTEMRA [Suspect]
     Active Substance: TOCILIZUMAB
  5. FOLIC ACID. [Suspect]
     Active Substance: FOLIC ACID
     Dosage: 1 GM, 1 IN 1 D
  6. FOSAMAX [Suspect]
     Active Substance: ALENDRONATE SODIUM
     Dosage: UNK
     Route: 048
     Dates: start: 2011, end: 2015
  7. SULFASALAZINE. [Suspect]
     Active Substance: SULFASALAZINE
     Dosage: 1 GM, 2 IN 1 D
  8. METHOTREXATE. [Suspect]
     Active Substance: METHOTREXATE
     Dosage: 15 MG, 1 IN 1 W
  9. HUMIRA [Suspect]
     Active Substance: ADALIMUMAB
     Route: 058
  10. RITUXAN [Suspect]
     Active Substance: RITUXIMAB
  11. ARAVA [Suspect]
     Active Substance: LEFLUNOMIDE

REACTIONS (20)
  - Vaginal infection [Recovered/Resolved]
  - Gastrointestinal disorder [Unknown]
  - Nervous system disorder [Unknown]
  - Eye pruritus [Unknown]
  - Musculoskeletal stiffness [Recovered/Resolved]
  - Drug ineffective [Unknown]
  - Hypersensitivity [Unknown]
  - Rash [Unknown]
  - Fatigue [Unknown]
  - Peripheral swelling [Unknown]
  - Lip swelling [Unknown]
  - Nausea [Unknown]
  - Rash [Unknown]
  - Arthralgia [Recovered/Resolved]
  - Infection [Unknown]
  - Joint swelling [Recovered/Resolved]
  - Swelling of eyelid [Unknown]
  - Paraesthesia [Unknown]
  - Pain in extremity [Unknown]
  - Asthenia [Unknown]

NARRATIVE: CASE EVENT DATE: 201910
